FAERS Safety Report 4995461-3 (Version None)
Quarter: 2006Q2

REPORT INFORMATION
  Report Type: 
  Country: None (occurrence: None)
  Receive Date: 20060504
  Receipt Date: 20060426
  Transmission Date: 20061013
  Serious: Yes (Other)
  Sender: FDA-Public Use
  Company Number: S06-USA-01639-01

PATIENT
  Sex: 0

DRUGS (1)
  1. LEXAPRO [Suspect]

REACTIONS (1)
  - WHITE BLOOD CELL COUNT DECREASED [None]
